FAERS Safety Report 18881069 (Version 2)
Quarter: 2021Q1

REPORT INFORMATION
  Report Type: Spontaneous
  Country: US (occurrence: US)
  Receive Date: 20210211
  Receipt Date: 20210310
  Transmission Date: 20210420
  Serious: Yes (Hospitalization)
  Sender: FDA-Public Use
  Company Number: US-PFIZER INC-2021122890

PATIENT
  Age: 78 Year
  Sex: Female

DRUGS (1)
  1. IBRANCE [Suspect]
     Active Substance: PALBOCICLIB
     Indication: BREAST CANCER
     Dosage: 125 MG, CYCLIC (ON FOR AN UNSPECIFIED AMOUNT OF DAYS, AND OFF FOR 7 DAYS)
     Dates: start: 20190421

REACTIONS (2)
  - Bladder cancer [Unknown]
  - Second primary malignancy [Unknown]
